FAERS Safety Report 8422687-9 (Version None)
Quarter: 2012Q2

REPORT INFORMATION
  Report Type: 
  Country: None (occurrence: None)
  Receive Date: 20120608
  Receipt Date: 20120604
  Transmission Date: 20120825
  Serious: Yes (Hospitalization)
  Sender: FDA-Public Use
  Company Number: FR-ROCHE-1075158

PATIENT
  Sex: Male

DRUGS (9)
  1. PREDNISONE TAB [Suspect]
     Dates: start: 20120420
  2. ASPIRIN [Concomitant]
  3. HYDREA [Concomitant]
  4. PLAVIX [Concomitant]
  5. CACIT D3 [Concomitant]
  6. MABTHERA [Suspect]
     Indication: ANAEMIA HAEMOLYTIC AUTOIMMUNE
     Route: 042
     Dates: start: 20120419, end: 20120426
  7. PREDNISONE TAB [Suspect]
     Indication: PRODUCT USED FOR UNKNOWN INDICATION
     Route: 048
     Dates: start: 20120418
  8. PREDNISONE TAB [Suspect]
     Dates: start: 20120504
  9. CRESTOR [Concomitant]

REACTIONS (3)
  - CONFUSIONAL STATE [None]
  - DISORIENTATION [None]
  - AGITATION [None]
